FAERS Safety Report 13956522 (Version 1)
Quarter: 2017Q3

REPORT INFORMATION
  Report Type: Spontaneous
  Country: SI (occurrence: SI)
  Receive Date: 20170911
  Receipt Date: 20170911
  Transmission Date: 20171128
  Serious: Yes (Life-Threatening, Hospitalization)
  Sender: FDA-Public Use
  Company Number: SI-TEVA-802310ACC

PATIENT
  Age: 80 Year
  Sex: Female

DRUGS (7)
  1. BOPACATIN [Suspect]
     Active Substance: CARBOPLATIN
     Indication: FALLOPIAN TUBE CANCER
     Dosage: 600 MILLIGRAM DAILY;
     Route: 042
     Dates: start: 20170523, end: 20170705
  2. REGLAN [Concomitant]
     Active Substance: METOCLOPRAMIDE HYDROCHLORIDE
     Dosage: 3 TIMES PER DAY
  3. NOPLAZA [Concomitant]
     Dosage: 1 DOSAGE FORMS DAILY;
  4. ATACAND PLUS 16/12.5 MG [Concomitant]
     Dosage: .5 DOSAGE FORMS DAILY;
  5. PORTALAK [Concomitant]
     Active Substance: LACTULOSE
  6. CONCOR COR 2.5MG [Concomitant]
  7. FRAGMIN 5000 IE [Concomitant]

REACTIONS (2)
  - Gastritis [Unknown]
  - Off label use [Recovered/Resolved]

NARRATIVE: CASE EVENT DATE: 20170523
